FAERS Safety Report 25874192 (Version 1)
Quarter: 2025Q4

REPORT INFORMATION
  Report Type: Spontaneous
  Country: US (occurrence: None)
  Receive Date: 20251002
  Receipt Date: 20251002
  Transmission Date: 20260118
  Serious: No
  Sender: FDA-CTU
  Company Number: None

PATIENT
  Age: 74 Year
  Sex: Female

DRUGS (1)
  1. POMALYST [Suspect]
     Active Substance: POMALIDOMIDE
     Indication: Plasma cell myeloma
     Dosage: 3MG QD ORAL
     Route: 048
     Dates: start: 20250123

REACTIONS (2)
  - Palpitations [None]
  - Atrial fibrillation [None]

NARRATIVE: CASE EVENT DATE: 20250916
